FAERS Safety Report 5700542-2 (Version None)
Quarter: 2008Q2

REPORT INFORMATION
  Report Type: 
  Country: None (occurrence: None)
  Receive Date: 20080407
  Receipt Date: 20080325
  Transmission Date: 20081010
  Serious: Yes (Hospitalization)
  Sender: FDA-Public Use
  Company Number: 2008BI006329

PATIENT
  Age: 31 Year
  Sex: Female

DRUGS (1)
  1. AVONEX [Suspect]
     Indication: MULTIPLE SCLEROSIS
     Dosage: 30UG;QW;IM
     Route: 030
     Dates: start: 20040201

REACTIONS (6)
  - ALCOHOL USE [None]
  - BLOOD PRESSURE DECREASED [None]
  - FALL [None]
  - INCORRECT DOSE ADMINISTERED [None]
  - TREMOR [None]
  - URINARY INCONTINENCE [None]
